FAERS Safety Report 23931268 (Version 1)
Quarter: 2024Q2

REPORT INFORMATION
  Report Type: Spontaneous
  Country: US (occurrence: US)
  Receive Date: 20240603
  Receipt Date: 20240603
  Transmission Date: 20240716
  Serious: Yes (Other)
  Sender: FDA-Public Use
  Company Number: US-ASTELLAS-2024US005152

PATIENT
  Sex: Female

DRUGS (5)
  1. KEYTRUDA [Suspect]
     Active Substance: PEMBROLIZUMAB
     Indication: Metastases to skin
     Dosage: UNK UNK, CYCLICAL
     Route: 065
     Dates: end: 2023
  2. KEYTRUDA [Suspect]
     Active Substance: PEMBROLIZUMAB
     Indication: Disease progression
  3. ENFORTUMAB VEDOTIN [Suspect]
     Active Substance: ENFORTUMAB VEDOTIN
     Indication: Metastases to skin
     Dosage: UNK, CYCLICAL
     Route: 065
     Dates: end: 2023
  4. ENFORTUMAB VEDOTIN [Suspect]
     Active Substance: ENFORTUMAB VEDOTIN
     Indication: Disease progression
  5. AVELUMAB [Concomitant]
     Active Substance: AVELUMAB

REACTIONS (3)
  - Stevens-Johnson syndrome [Unknown]
  - Skin toxicity [Unknown]
  - Liver function test increased [Unknown]
